FAERS Safety Report 15267442 (Version 1)
Quarter: 2018Q3

REPORT INFORMATION
  Report Type: Spontaneous
  Country: US (occurrence: US)
  Receive Date: 20180724
  Receipt Date: 20180724
  Transmission Date: 20181010
  Serious: Yes (Hospitalization, Disabling, Other)
  Sender: FDA-Public Use
  Company Number: None

PATIENT
  Age: 37 Year
  Sex: Female
  Weight: 56.25 kg

DRUGS (8)
  1. STELARA [Concomitant]
     Active Substance: USTEKINUMAB
  2. BIOTIN [Concomitant]
     Active Substance: BIOTIN
  3. TYLENOL [Concomitant]
     Active Substance: ACETAMINOPHEN
  4. STELARA [Suspect]
     Active Substance: USTEKINUMAB
     Indication: ANKYLOSING SPONDYLITIS
     Route: 042
  5. ATIVAN [Concomitant]
     Active Substance: LORAZEPAM
  6. KLONOPIN [Concomitant]
     Active Substance: CLONAZEPAM
  7. APRI [Concomitant]
     Active Substance: DESOGESTREL\ETHINYL ESTRADIOL
  8. MULTIVITAMIN [Concomitant]
     Active Substance: VITAMINS

REACTIONS (3)
  - Pneumothorax [None]
  - Pneumonitis [None]
  - Restrictive pulmonary disease [None]

NARRATIVE: CASE EVENT DATE: 20180521
